FAERS Safety Report 4767271-3 (Version None)
Quarter: 2005Q3

REPORT INFORMATION
  Report Type: 
  Country: None (occurrence: None)
  Receive Date: 20050913
  Receipt Date: 20050629
  Transmission Date: 20060218
  Serious: Yes (Life-Threatening, Hospitalization, Other)
  Sender: FDA-Public Use
  Company Number: 410024

PATIENT
  Age: 53 Year
  Sex: Male
  Weight: 78.2 kg

DRUGS (8)
  1. COREG [Suspect]
     Indication: DRUG USE FOR UNKNOWN INDICATION
     Dosage: 25MG TWICE PER DAY
     Route: 048
  2. LANTUS [Suspect]
  3. UNKNOWN MEDICATION [Suspect]
  4. INSULIN [Concomitant]
  5. ZOCOR [Concomitant]
  6. ASPIRIN [Concomitant]
  7. LASIX [Concomitant]
  8. PRINIVIL [Concomitant]

REACTIONS (2)
  - CONVULSION [None]
  - HYPOGLYCAEMIA [None]
